FAERS Safety Report 18058507 (Version 1)
Quarter: 2020Q3

REPORT INFORMATION
  Report Type: Spontaneous
  Country: US (occurrence: US)
  Receive Date: 20200722
  Receipt Date: 20200722
  Transmission Date: 20201103
  Serious: Yes (Other)
  Sender: FDA-Public Use
  Company Number: None

PATIENT
  Age: 71 Year
  Sex: Male
  Weight: 111 kg

DRUGS (8)
  1. ATORVASTATIN 40 MG ORAL DAILY [Concomitant]
     Dates: start: 20200717, end: 20200721
  2. DEXAMETHASONE 6 MG DAILY IV [Concomitant]
     Dates: start: 20200717, end: 20200722
  3. FUROSEMIDE 40 MG IV BID [Concomitant]
     Dates: start: 20200718, end: 20200721
  4. CHOLECALCIFEROL 25 MCG ORAL DAILY [Concomitant]
     Dates: start: 20200717, end: 20200722
  5. REMDESIVIR. [Suspect]
     Active Substance: REMDESIVIR
     Indication: SARS-COV-2 TEST POSITIVE
     Dosage: ?          OTHER FREQUENCY:ONCE;?
     Route: 041
  6. ASCORBIC ACID 3000 MG ORAL BID [Concomitant]
     Dates: start: 20200717, end: 20200722
  7. ZINC 220 MG DAILY ORAL [Concomitant]
     Dates: start: 20200718, end: 20200722
  8. REMDESIVIR. [Suspect]
     Active Substance: REMDESIVIR
     Indication: SARS-COV-2 TEST POSITIVE
     Route: 041
     Dates: start: 20200720, end: 20200721

REACTIONS (1)
  - Hepatic enzyme increased [None]

NARRATIVE: CASE EVENT DATE: 20200721
